FAERS Safety Report 14794185 (Version 1)
Quarter: 2018Q2

REPORT INFORMATION
  Report Type: Spontaneous
  Country: DE (occurrence: DE)
  Receive Date: 20180423
  Receipt Date: 20180423
  Transmission Date: 20180711
  Serious: Yes (Hospitalization, Other)
  Sender: FDA-Public Use
  Company Number: PHHY2018DE070502

PATIENT
  Sex: Male
  Weight: .9 kg

DRUGS (2)
  1. VALPROIC ACID. [Suspect]
     Active Substance: VALPROIC ACID
     Indication: FOETAL EXPOSURE DURING PREGNANCY
     Dosage: 1800 MG, QD
     Route: 064
  2. FOLIC ACID. [Suspect]
     Active Substance: FOLIC ACID
     Indication: FOETAL EXPOSURE DURING PREGNANCY
     Dosage: 0.4 MG, QOD
     Route: 064

REACTIONS (6)
  - Hypospadias [Unknown]
  - Haemangioma [Unknown]
  - Inguinal hernia [Unknown]
  - Hypermobility syndrome [Unknown]
  - Foetal exposure during pregnancy [Unknown]
  - Foetal anticonvulsant syndrome [Recovered/Resolved with Sequelae]
